FAERS Safety Report 10464110 (Version 1)
Quarter: 2014Q3

REPORT INFORMATION
  Report Type: Spontaneous
  Country: US (occurrence: US)
  Receive Date: 20140919
  Receipt Date: 20140919
  Transmission Date: 20150326
  Serious: Yes (Hospitalization)
  Sender: FDA-Public Use
  Company Number: US-SA-2014SA124619

PATIENT
  Age: 65 Year
  Sex: Male

DRUGS (1)
  1. LUMIZYME [Suspect]
     Active Substance: ALGLUCOSIDASE ALFA
     Indication: GLYCOGEN STORAGE DISEASE TYPE II
     Route: 042
     Dates: start: 20080731

REACTIONS (6)
  - Insomnia [Recovered/Resolved]
  - Condition aggravated [Unknown]
  - Reaction to preservatives [Recovered/Resolved]
  - Weight bearing difficulty [Recovered/Resolved]
  - Mobility decreased [Recovered/Resolved]
  - Pain [Unknown]

NARRATIVE: CASE EVENT DATE: 201407
